FAERS Safety Report 4739162-5 (Version None)
Quarter: 2005Q3

REPORT INFORMATION
  Report Type: 
  Country: None (occurrence: None)
  Receive Date: 20050810
  Receipt Date: 20050429
  Transmission Date: 20060218
  Serious: No
  Sender: FDA-Public Use
  Company Number: US-GLAXOSMITHKLINE-A0556343A

PATIENT
  Age: 37 Year
  Sex: Male

DRUGS (5)
  1. PAXIL CR [Suspect]
     Dosage: 25MG PER DAY
     Route: 048
     Dates: start: 20040801
  2. XANAX [Concomitant]
  3. ATENOLOL [Concomitant]
  4. TRICOR [Concomitant]
  5. CRESTOR [Concomitant]

REACTIONS (7)
  - ANGER [None]
  - BLOOD PRESSURE INCREASED [None]
  - EMOTIONAL DISORDER [None]
  - FALL [None]
  - FLUSHING [None]
  - HEAD INJURY [None]
  - INSOMNIA [None]
